FAERS Safety Report 6998338-7 (Version None)
Quarter: 2010Q3

REPORT INFORMATION
  Report Type: 
  Country: None (occurrence: None)
  Receive Date: 20100920
  Receipt Date: 20100415
  Transmission Date: 20110219
  Serious: No
  Sender: FDA-Public Use
  Company Number: US-ASTRAZENECA-2010SE16870

PATIENT
  Age: 62 Year
  Sex: Female
  Weight: 71.7 kg

DRUGS (7)
  1. SEROQUEL [Suspect]
     Indication: BIPOLAR I DISORDER
     Route: 048
     Dates: start: 20050101
  2. SEROQUEL [Suspect]
     Route: 048
  3. SEROQUEL [Suspect]
     Route: 048
  4. SEROQUEL [Suspect]
     Route: 048
     Dates: end: 20091201
  5. SEROQUEL [Suspect]
     Route: 048
     Dates: start: 20100101
  6. LEVOXYL [Concomitant]
     Indication: THYROID DISORDER
     Route: 065
  7. LEXAPRO [Concomitant]
     Route: 065

REACTIONS (8)
  - ANXIETY [None]
  - BODY HEIGHT DECREASED [None]
  - DIABETES MELLITUS [None]
  - DRUG DOSE OMISSION [None]
  - INSOMNIA [None]
  - SOMNOLENCE [None]
  - TACHYPHRENIA [None]
  - WEIGHT DECREASED [None]
